FAERS Safety Report 11748289 (Version 3)
Quarter: 2015Q4

REPORT INFORMATION
  Report Type: Report from Study
  Country: JP (occurrence: JP)
  Receive Date: 20151117
  Receipt Date: 20151127
  Transmission Date: 20160304
  Serious: Yes (Hospitalization)
  Sender: FDA-Public Use
  Company Number: JP-ASTRAZENECA-2015SF09309

PATIENT
  Age: 27158 Day
  Sex: Female
  Weight: 42.8 kg

DRUGS (15)
  1. OSIMERTINIB [Suspect]
     Active Substance: OSIMERTINIB
     Indication: NON-SMALL CELL LUNG CANCER METASTATIC
     Route: 048
     Dates: start: 20140611
  2. BIKEN HA [Suspect]
     Active Substance: INFLUENZA VIRUS VACCINE
     Indication: ANTIVIRAL PROPHYLAXIS
     Route: 058
     Dates: start: 20151106, end: 20151106
  3. BROTIZOLAM [Concomitant]
     Active Substance: BROTIZOLAM
     Indication: INSOMNIA
     Dosage: AS REQUIRED
     Route: 048
     Dates: start: 20140612
  4. ZINC OXIDE SIMPLE OINTMENT [Concomitant]
     Active Substance: ZINC OXIDE
     Indication: DRY SKIN
     Dosage: AS REQUIRED
     Route: 003
     Dates: start: 20151028
  5. RINDERON V [Concomitant]
     Active Substance: BETAMETHASONE VALERATE
     Indication: RASH
     Dosage: AS REQUIRED
     Route: 003
     Dates: start: 20150322
  6. OLMETEC [Concomitant]
     Active Substance: OLMESARTAN MEDOXOMIL
     Indication: HYPERTENSION
     Route: 048
  7. OSIMERTINIB [Suspect]
     Active Substance: OSIMERTINIB
     Indication: NON-SMALL CELL LUNG CANCER METASTATIC
     Route: 048
     Dates: start: 20151113, end: 20151120
  8. HIRUDOID [Concomitant]
     Active Substance: GLYCOSAMINOGLYCANS
     Indication: PRURITUS
     Dosage: AS REQUIRED
     Route: 003
  9. OSIMERTINIB [Suspect]
     Active Substance: OSIMERTINIB
     Indication: NON-SMALL CELL LUNG CANCER METASTATIC
     Route: 048
     Dates: start: 20140702, end: 20151110
  10. OSIMERTINIB [Suspect]
     Active Substance: OSIMERTINIB
     Indication: NON-SMALL CELL LUNG CANCER METASTATIC
     Route: 048
     Dates: start: 20151121, end: 20151122
  11. DERMOVATE SCALP [Concomitant]
     Indication: RASH
     Dosage: AS REQUIRED
     Route: 003
     Dates: start: 20150412
  12. ANTEBATE LOTION [Concomitant]
     Indication: RASH
     Dosage: AS REQUIRED
     Route: 003
     Dates: start: 20151028
  13. HIRUDOID [Concomitant]
     Active Substance: GLYCOSAMINOGLYCANS
     Indication: RASH
     Dosage: AS REQUIRED
     Route: 003
  14. TALION [Concomitant]
     Active Substance: BEPOTASTINE
     Indication: RASH
     Route: 048
     Dates: start: 20150803
  15. ANTEBATE OINTMENT [Concomitant]
     Indication: RASH
     Dosage: AS REQUIRED
     Route: 003
     Dates: start: 20150803

REACTIONS (2)
  - Hyponatraemia [Recovering/Resolving]
  - Multiple fractures [Not Recovered/Not Resolved]

NARRATIVE: CASE EVENT DATE: 20151106
